FAERS Safety Report 11202695 (Version 1)
Quarter: 2015Q2

REPORT INFORMATION
  Report Type: Spontaneous
  Country: FR (occurrence: FR)
  Receive Date: 20150619
  Receipt Date: 20150619
  Transmission Date: 20150821
  Serious: Yes (Hospitalization)
  Sender: FDA-Public Use
  Company Number: FR-ASTRAZENECA-2015SE59711

PATIENT
  Age: 16893 Day
  Sex: Male

DRUGS (6)
  1. PARACETAMOL [Suspect]
     Active Substance: ACETAMINOPHEN
     Dosage: AS REQUIRED
     Route: 048
  2. SPIFEN [Concomitant]
     Active Substance: IBUPROFEN
     Indication: MIGRAINE
  3. NOCTAMIDE [Suspect]
     Active Substance: LORMETAZEPAM
     Route: 048
  4. XEROQUEL [Suspect]
     Active Substance: QUETIAPINE FUMARATE
     Route: 048
     Dates: start: 2011
  5. XANAX [Suspect]
     Active Substance: ALPRAZOLAM
     Route: 048
  6. LYRICA [Suspect]
     Active Substance: PREGABALIN
     Route: 048

REACTIONS (4)
  - Infection [Unknown]
  - Dyspnoea [Recovered/Resolved]
  - Hypoxia [Unknown]
  - Interstitial lung disease [Recovering/Resolving]

NARRATIVE: CASE EVENT DATE: 20150520
